APPROVED DRUG PRODUCT: TIMOLOL MALEATE
Active Ingredient: TIMOLOL MALEATE
Strength: EQ 0.5% BASE
Dosage Form/Route: SOLUTION/DROPS;OPHTHALMIC
Application: A216653 | Product #001 | TE Code: AT2
Applicant: SOMERSET THERAPEUTICS LLC
Approved: Jul 3, 2024 | RLD: No | RS: No | Type: RX